FAERS Safety Report 9894905 (Version 2)
Quarter: 2014Q1

REPORT INFORMATION
  Report Type: Spontaneous
  Country: US (occurrence: US)
  Receive Date: 20140213
  Receipt Date: 20140303
  Transmission Date: 20141002
  Serious: Yes (Hospitalization, Other)
  Sender: FDA-Public Use
  Company Number: US-SA-2013SA128743

PATIENT
  Age: 51 Year
  Sex: Female

DRUGS (1)
  1. KYNAMRO [Suspect]
     Indication: TYPE IIA HYPERLIPIDAEMIA
     Route: 065
     Dates: start: 20130820

REACTIONS (5)
  - Angina pectoris [Unknown]
  - Malaise [Unknown]
  - Drug dose omission [Unknown]
  - Chest discomfort [Unknown]
  - Lung neoplasm malignant [Unknown]
